FAERS Safety Report 7113669-8 (Version None)
Quarter: 2010Q4

REPORT INFORMATION
  Report Type: 
  Country: None (occurrence: None)
  Receive Date: 20101119
  Receipt Date: 20101110
  Transmission Date: 20110411
  Serious: Yes (Other)
  Sender: FDA-Public Use
  Company Number: US-PURDUE-USA-2010-0050668

PATIENT
  Sex: Male

DRUGS (2)
  1. OXYCONTIN [Suspect]
     Indication: PAIN
     Dosage: 80 MG, BID
     Dates: start: 20100906
  2. OXYCONTIN [Suspect]
     Dosage: 40 MG, BID
     Dates: start: 20100906

REACTIONS (4)
  - DRUG INEFFECTIVE [None]
  - HEART RATE DECREASED [None]
  - NAUSEA [None]
  - VOMITING [None]
